FAERS Safety Report 15360497 (Version 1)
Quarter: 2018Q3

REPORT INFORMATION
  Report Type: Spontaneous
  Country: IT (occurrence: IT)
  Receive Date: 20180907
  Receipt Date: 20180907
  Transmission Date: 20181010
  Serious: Yes (Other)
  Sender: FDA-Public Use
  Company Number: IT-TEVA-2018-IT-951643

PATIENT
  Age: 65 Year
  Sex: Male

DRUGS (4)
  1. VOLTADVANCE [Concomitant]
     Active Substance: DICLOFENAC SODIUM
     Indication: PAIN
  2. ALLOPURINOLO TEVA [Suspect]
     Active Substance: ALLOPURINOL
     Indication: GOUT
  3. RAMIPRIL. [Concomitant]
     Active Substance: RAMIPRIL
     Indication: BLOOD PRESSURE INCREASED
  4. ALLOPURINOLO TEVA [Suspect]
     Active Substance: ALLOPURINOL
     Indication: BLOOD URIC ACID INCREASED
     Dosage: 100 MILLIGRAM DAILY;
     Dates: start: 201807, end: 201807

REACTIONS (3)
  - Nephrolithiasis [Unknown]
  - Renal cyst [Unknown]
  - Acne [Recovered/Resolved]
